FAERS Safety Report 8084273-2 (Version None)
Quarter: 2012Q1

REPORT INFORMATION
  Report Type: 
  Country: None (occurrence: None)
  Receive Date: 20120128
  Receipt Date: 20110304
  Transmission Date: 20120608
  Serious: No
  Sender: FDA-Public Use
  Company Number: US-ABBOTT-11P-163-0709962-00

PATIENT
  Age: 38 Year
  Sex: Female

DRUGS (9)
  1. DICYCLOMINE [Concomitant]
     Indication: PRODUCT USED FOR UNKNOWN INDICATION
  2. PROMETHAZINE [Concomitant]
     Indication: PRODUCT USED FOR UNKNOWN INDICATION
  3. VITAMIN B-12 [Concomitant]
     Indication: PRODUCT USED FOR UNKNOWN INDICATION
  4. HUMIRA [Suspect]
     Indication: CROHN'S DISEASE
     Route: 058
     Dates: start: 20100901
  5. AMBIEN [Concomitant]
     Indication: INSOMNIA
  6. TRAZODONE HCL [Concomitant]
     Indication: INSOMNIA
     Dosage: AT NIGHT; 1 IN 1 DAY
  7. FIORICET [Concomitant]
     Indication: PRODUCT USED FOR UNKNOWN INDICATION
  8. BENADRYL [Concomitant]
     Indication: PRODUCT USED FOR UNKNOWN INDICATION
     Dosage: AS NEEDED
  9. CLARITIN [Concomitant]
     Indication: HYPERSENSITIVITY

REACTIONS (4)
  - INJECTION SITE PAIN [None]
  - FUNGAL INFECTION [None]
  - VAGINAL DISORDER [None]
  - PAIN [None]
